FAERS Safety Report 8571341 (Version 2)
Quarter: 2012Q4

REPORT INFORMATION
  Report Type: 
  Country: DE (occurrence: DE)
  Receive Date: 20120521
  Receipt Date: 20121212
  Transmission Date: 20130627
  Serious: Yes (Hospitalization)
  Sender: FDA-Public Use
  Company Number: PHHY2012DE042639

PATIENT
  Age: 59 Year
  Sex: Female
  Weight: 90 kg

DRUGS (3)
  1. GILENYA [Suspect]
     Indication: MULTIPLE SCLEROSIS
     Dosage: 0.5 mg, QD
     Route: 048
     Dates: start: 201110
  2. THYROXIN [Concomitant]
     Indication: HYPOTHYROIDISM
     Dosage: 50 ug, per day
     Route: 048
  3. TRIMIPRAMINE [Concomitant]
     Indication: DEPRESSION
     Dosage: 50 mg/day
     Route: 048

REACTIONS (6)
  - Amaurosis fugax [Recovered/Resolved]
  - Blindness transient [Recovered/Resolved]
  - Hypercholesterolaemia [Unknown]
  - Vascular calcification [Unknown]
  - Hypertriglyceridaemia [Unknown]
  - Vision blurred [Unknown]
